FAERS Safety Report 6785233-1 (Version None)
Quarter: 2010Q2

REPORT INFORMATION
  Report Type: 
  Country: None (occurrence: None)
  Receive Date: 20100622
  Receipt Date: 20100622
  Transmission Date: 20101027
  Serious: Yes (Other)
  Sender: FDA-Public Use
  Company Number: None

PATIENT
  Age: 25 Year
  Sex: Female

DRUGS (1)
  1. COMPAZINE [Suspect]
     Dosage: THROUGH IV 1X
     Route: 042

REACTIONS (12)
  - AKATHISIA [None]
  - ANXIETY [None]
  - ARTHRALGIA [None]
  - DEPRESSION [None]
  - DISTURBANCE IN ATTENTION [None]
  - FEAR [None]
  - FEELING ABNORMAL [None]
  - FEELING JITTERY [None]
  - GAIT DISTURBANCE [None]
  - HEADACHE [None]
  - INSOMNIA [None]
  - MALAISE [None]
